FAERS Safety Report 12937682 (Version 2)
Quarter: 2017Q1

REPORT INFORMATION
  Report Type: Report from Study
  Country: None (occurrence: FR)
  Receive Date: 20161114
  Receipt Date: 20170109
  Transmission Date: 20170428
  Serious: Yes (Death, Hospitalization)
  Sender: FDA-Public Use
  Company Number: FR-ABBVIE-16P-056-1778338-00

PATIENT
  Age: 73 Year
  Sex: Male

DRUGS (6)
  1. EXELON [Concomitant]
     Active Substance: RIVASTIGMINE TARTRATE
     Indication: COGNITIVE DISORDER
     Dosage: 1 IN THE MORNING + 1 IN THE EVENING
     Route: 048
  2. ROSUVASTATIN. [Concomitant]
     Active Substance: ROSUVASTATIN
     Indication: HYPERCHOLESTEROLAEMIA
     Route: 048
  3. DUODOPA [Suspect]
     Active Substance: CARBIDOPA\LEVODOPA
     Dosage: 8ML/HOUR, FROM 8 AM TO 8PM / DAY
     Route: 050
     Dates: start: 201610
  4. OMEPRAZOLE. [Concomitant]
     Active Substance: OMEPRAZOLE
     Indication: GASTRITIS
     Dosage: OMEPRAZOLE
  5. XEROQUEL [Concomitant]
     Active Substance: QUETIAPINE FUMARATE
     Indication: HALLUCINATION
     Dosage: 1 IN THE MORNING + 2 IN THE EVENING
     Route: 048
  6. DUODOPA [Suspect]
     Active Substance: CARBIDOPA\LEVODOPA
     Indication: PRODUCT USED FOR UNKNOWN INDICATION
     Dosage: 8ML/HOUR, FROM 8 AM TO 8PM / DAY
     Route: 050
     Dates: start: 201610

REACTIONS (3)
  - Arrhythmia [Fatal]
  - Cardiac arrest [Fatal]
  - Hallucination [Not Recovered/Not Resolved]

NARRATIVE: CASE EVENT DATE: 20161013
